FAERS Safety Report 10606282 (Version 1)
Quarter: 2014Q4

REPORT INFORMATION
  Report Type: Spontaneous
  Country: RS (occurrence: RS)
  Receive Date: 20141125
  Receipt Date: 20141125
  Transmission Date: 20150529
  Serious: Yes (Other)
  Sender: FDA-Public Use
  Company Number: RS-TEVA-524678ISR

PATIENT
  Age: 3 Year
  Sex: Male

DRUGS (1)
  1. METHOTREXATE [Suspect]
     Active Substance: METHOTREXATE
     Indication: ACUTE LYMPHOCYTIC LEUKAEMIA
     Route: 065

REACTIONS (6)
  - Toxicity to various agents [Unknown]
  - Arachnoiditis [Unknown]
  - Ataxia [Unknown]
  - Cerebral calcification [Unknown]
  - Brain oedema [Unknown]
  - Hemiparesis [Unknown]
